FAERS Safety Report 20633285 (Version 3)
Quarter: 2022Q4

REPORT INFORMATION
  Report Type: Spontaneous
  Country: JP (occurrence: JP)
  Receive Date: 20220324
  Receipt Date: 20221018
  Transmission Date: 20230112
  Serious: Yes (Death, Life-Threatening, Other)
  Sender: FDA-Public Use
  Company Number: JP-GILEAD-2021-0550755

PATIENT
  Age: 74 Year
  Sex: Male
  Weight: 77.7 kg

DRUGS (45)
  1. VEMLIDY [Suspect]
     Active Substance: TENOFOVIR ALAFENAMIDE FUMARATE
     Indication: Chronic hepatitis B
     Dosage: 25 MG, QD
     Route: 048
     Dates: start: 20210907, end: 20210930
  2. FUROSEMIDE [Suspect]
     Active Substance: FUROSEMIDE
     Indication: Ascites
     Dosage: 20MG/A, QD
     Route: 041
     Dates: start: 20210830, end: 20210903
  3. FUROSEMIDE [Suspect]
     Active Substance: FUROSEMIDE
     Dosage: 20 MG, QD
     Route: 048
     Dates: start: 20210904, end: 20210910
  4. FUROSEMIDE [Suspect]
     Active Substance: FUROSEMIDE
     Dosage: 20MG/A, QD
     Route: 041
     Dates: start: 20210921, end: 20211005
  5. FUROSEMIDE [Suspect]
     Active Substance: FUROSEMIDE
     Dosage: 20MG/A, QD
     Route: 041
     Dates: start: 20210929, end: 20210930
  6. FUROSEMIDE [Suspect]
     Active Substance: FUROSEMIDE
     Dosage: 20MG/A, BID
     Route: 041
     Dates: start: 20211001, end: 20211001
  7. FUROSEMIDE [Suspect]
     Active Substance: FUROSEMIDE
     Dosage: 40MG/A, QD
     Route: 041
     Dates: start: 20211002, end: 20211005
  8. PREDONINE [Concomitant]
     Active Substance: PREDNISOLONE
     Indication: Rheumatoid arthritis
     Dosage: 5 MG, QD
     Route: 048
     Dates: start: 20181116, end: 20211005
  9. PROGRAF [Concomitant]
     Active Substance: TACROLIMUS
     Indication: Rheumatoid arthritis
     Dosage: 1MG AND 0.5MG, QD
     Route: 048
     Dates: start: 20210827, end: 20210926
  10. CABPIRIN [Concomitant]
     Indication: Angina pectoris
     Dosage: 1 DOSAGE FORM, QD
     Route: 048
     Dates: start: 20201211, end: 20210924
  11. CRESTOR [Concomitant]
     Active Substance: ROSUVASTATIN CALCIUM
     Indication: Hypercholesterolaemia
     Dosage: 2.5 MG, QD
     Route: 048
     Dates: start: 20110126, end: 20210916
  12. AZILSARTAN KAMEDOXOMIL [Concomitant]
     Active Substance: AZILSARTAN KAMEDOXOMIL
     Indication: Hypertension
     Dosage: 20 MG, QD
     Route: 048
     Dates: start: 20181109, end: 20210916
  13. BELSOMRA [Concomitant]
     Active Substance: SUVOREXANT
     Indication: Insomnia
     Dosage: 15 MG, QD
     Route: 048
     Dates: start: 20210902, end: 20210926
  14. LIVACT [ISOLEUCINE;LEUCINE;VALINE] [Concomitant]
     Indication: Hypoalbuminaemia
     Dosage: 4.15 G, TID
     Route: 048
     Dates: start: 20210904, end: 20210925
  15. AZOSEMIDE [Concomitant]
     Active Substance: AZOSEMIDE
     Indication: Ascites
     Dosage: 1 DOSAGE FORM, QD
     Route: 048
     Dates: start: 20210911, end: 20210917
  16. CEFTRIAXONE SODIUM [Concomitant]
     Active Substance: CEFTRIAXONE SODIUM
     Indication: Sepsis
     Dosage: 1G BAG, BID
     Route: 041
     Dates: start: 20210827, end: 20210909
  17. CALCIUM CHLORIDE\POTASSIUM CHLORIDE\SODIUM CHLORIDE\SODIUM LACTATE [Concomitant]
     Active Substance: CALCIUM CHLORIDE\POTASSIUM CHLORIDE\SODIUM CHLORIDE\SODIUM LACTATE
     Indication: Dehydration
     Dosage: 500ML / BAG, QD
     Dates: start: 20210827, end: 20210830
  18. CALCIUM CHLORIDE\POTASSIUM CHLORIDE\SODIUM CHLORIDE\SODIUM LACTATE [Concomitant]
     Active Substance: CALCIUM CHLORIDE\POTASSIUM CHLORIDE\SODIUM CHLORIDE\SODIUM LACTATE
     Dosage: 1000ML / BAG, QD
     Dates: start: 20210928, end: 20210930
  19. SOLDEM 3AG [Concomitant]
     Indication: Dehydration
     Dosage: 500ML / BAG, QD
     Dates: start: 20210831, end: 20210901
  20. SOLDEM 3A [Concomitant]
     Active Substance: CARBOHYDRATES\POTASSIUM CHLORIDE\SODIUM CHLORIDE\SODIUM LACTATE
     Indication: Dehydration
     Dosage: 200ML / BAG, QD
     Dates: start: 20210902, end: 20210903
  21. SOLDEM 3A [Concomitant]
     Active Substance: CARBOHYDRATES\POTASSIUM CHLORIDE\SODIUM CHLORIDE\SODIUM LACTATE
     Dosage: 200ML / BAG, QD
     Dates: start: 20210910, end: 20210913
  22. CELECOXIB [Concomitant]
     Active Substance: CELECOXIB
     Dosage: 100 MG, BID
     Route: 048
     Dates: start: 20161003, end: 20210827
  23. RHEUMATREX [Concomitant]
     Active Substance: METHOTREXATE SODIUM
     Dosage: 4MG IN THE MORNING AND 2MG IN THE EVENING, BID
     Route: 048
     Dates: start: 20161109, end: 20210827
  24. LYRICA [Concomitant]
     Active Substance: PREGABALIN
     Dosage: 75 MG, BID
     Route: 048
     Dates: start: 20170222, end: 20210827
  25. FOLIC ACID [Concomitant]
     Active Substance: FOLIC ACID
     Dosage: UNK
     Route: 048
     Dates: end: 20210827
  26. CALONAL [Concomitant]
     Active Substance: ACETAMINOPHEN
     Indication: Abdominal pain
     Dosage: 400 MG, QD
     Route: 048
     Dates: start: 20210916, end: 20210927
  27. NEXIUM [Concomitant]
     Active Substance: ESOMEPRAZOLE MAGNESIUM
     Indication: Gastric ulcer
     Dosage: 20 MG, QD
     Route: 048
     Dates: start: 20210917, end: 20211005
  28. URSODIOL [Concomitant]
     Active Substance: URSODIOL
     Indication: Hepatic failure
     Dosage: 200 MG, TID
     Route: 048
     Dates: start: 20210921, end: 20210924
  29. DEXTROSE\SODIUM CHLORIDE\SODIUM LACTATE [Concomitant]
     Active Substance: DEXTROSE\SODIUM CHLORIDE\SODIUM LACTATE
     Indication: Dehydration
     Dosage: 500 ML/BAG, QD
     Dates: start: 20210913, end: 20210917
  30. DEXTROSE\SODIUM CHLORIDE\SODIUM LACTATE [Concomitant]
     Active Substance: DEXTROSE\SODIUM CHLORIDE\SODIUM LACTATE
     Dosage: 500 ML/BAG, QD
     Dates: start: 20210928, end: 20210930
  31. DEXTROSE\SODIUM CHLORIDE\SODIUM LACTATE [Concomitant]
     Active Substance: DEXTROSE\SODIUM CHLORIDE\SODIUM LACTATE
     Dosage: 500 ML/BAG, QD
     Route: 042
     Dates: start: 20211002, end: 20211003
  32. SOLULACT D [Concomitant]
     Indication: Dehydration
     Dosage: 500 ML/BAG, QD
     Dates: start: 20210914, end: 20210917
  33. SOLULACT D [Concomitant]
     Dosage: 1000 ML/BAG, QD
     Dates: start: 20210928, end: 20210930
  34. ELNEOPA NF NO.1 [Concomitant]
     Indication: Parenteral nutrition
     Dosage: 1500 ML, QD
     Route: 042
     Dates: start: 20210918, end: 20210919
  35. AMINO ACIDS\DEXTROSE\ELECTROLYTES NOS\MINERALS\VITAMINS [Concomitant]
     Active Substance: AMINO ACIDS\DEXTROSE\ELECTROLYTES NOS\MINERALS\VITAMINS
     Indication: Parenteral nutrition
     Dosage: 1500 ML, QD
     Route: 042
     Dates: start: 20210920, end: 20210924
  36. AMINO ACIDS\DEXTROSE\ELECTROLYTES NOS\MINERALS\VITAMINS [Concomitant]
     Active Substance: AMINO ACIDS\DEXTROSE\ELECTROLYTES NOS\MINERALS\VITAMINS
     Dosage: 1000 ML, QD
     Route: 042
     Dates: start: 20210925, end: 20210927
  37. DEXTROSE [Concomitant]
     Active Substance: DEXTROSE
     Indication: Parenteral nutrition
     Dosage: 70% 350 ML, QD
     Route: 042
     Dates: start: 20211001, end: 20211005
  38. DEXTROSE [Concomitant]
     Active Substance: DEXTROSE
     Dosage: 50% 100 ML, QD
     Route: 042
     Dates: start: 20211001, end: 20211005
  39. KIDMIN [ALANINE;ARGININE;ASPARTIC ACID;CYSTEINE;GLUTAMIC ACID;HISTIDIN [Concomitant]
     Indication: Parenteral nutrition
     Dosage: 400 ML, QD
     Route: 042
     Dates: start: 20211001, end: 20211004
  40. OTSUKA MV [Concomitant]
     Indication: Parenteral nutrition
     Dosage: UNK UNK, QD
     Route: 042
     Dates: start: 20211001, end: 20211005
  41. CUPRIC SULFATE\FERRIC CHLORIDE\MANGANESE CHLORIDE\POTASSIUM IODIDE\ZIN [Concomitant]
     Active Substance: CUPRIC SULFATE\FERRIC CHLORIDE\MANGANESE CHLORIDE\POTASSIUM IODIDE\ZINC SULFATE
     Indication: Parenteral nutrition
     Dosage: 2 ML, QD
     Route: 042
     Dates: start: 20211001, end: 20211005
  42. SODIUM CHLORIDE [Concomitant]
     Active Substance: SODIUM CHLORIDE
     Indication: Blood sodium decreased
     Dosage: 3 MEQ, TID
     Route: 042
     Dates: start: 20211001, end: 20211004
  43. NOVOLIN R [Concomitant]
     Active Substance: INSULIN HUMAN
     Indication: Hyperglycaemia
     Dosage: 30 UNITS, QD
     Route: 042
     Dates: start: 20211001, end: 20211004
  44. ACETAMINOPHEN [Concomitant]
     Active Substance: ACETAMINOPHEN
     Indication: Abdominal pain
     Dosage: 1000 MG, QD
     Route: 042
     Dates: start: 20211002, end: 20211002
  45. NORNICICAMIN [HYDROXOCOBALAMIN ACETATE;PYRIDOXINE HYDROCHLORIDE;THIAMI [Concomitant]
     Indication: Vitamin supplementation
     Dosage: UNK
     Dates: start: 20210910, end: 20210913

REACTIONS (4)
  - Renal failure [Fatal]
  - Renal impairment [Fatal]
  - Hepatic encephalopathy [Not Recovered/Not Resolved]
  - Vomiting [Not Recovered/Not Resolved]

NARRATIVE: CASE EVENT DATE: 20210913
